FAERS Safety Report 7612341-5 (Version None)
Quarter: 2011Q3

REPORT INFORMATION
  Report Type: 
  Country: None (occurrence: None)
  Receive Date: 20110715
  Receipt Date: 20110706
  Transmission Date: 20111222
  Serious: Yes (Hospitalization, Other)
  Sender: FDA-Public Use
  Company Number: US-ASTRAZENECA-2010SE39057

PATIENT
  Age: 54 Year
  Sex: Male
  Weight: 149.7 kg

DRUGS (9)
  1. PULMICORT [Suspect]
     Route: 055
  2. COMBIVENT [Concomitant]
  3. SYMBICORT [Suspect]
     Indication: CHRONIC OBSTRUCTIVE PULMONARY DISEASE
     Dosage: 160/4.5,2 PUFFS, TWO TIMES A DAY
     Route: 055
  4. FLEXERIL [Concomitant]
  5. HYDROCODONE [Concomitant]
  6. BROVANA [Concomitant]
  7. IBUPROFEN [Concomitant]
  8. NEURONTIN [Concomitant]
  9. VITAMIN TAB [Concomitant]

REACTIONS (7)
  - VISUAL IMPAIRMENT [None]
  - DRUG INEFFECTIVE [None]
  - LUNG NEOPLASM [None]
  - CHEST DISCOMFORT [None]
  - MALAISE [None]
  - DYSPNOEA [None]
  - DRUG DOSE OMISSION [None]
